FAERS Safety Report 22538271 (Version 1)
Quarter: 2023Q2

REPORT INFORMATION
  Report Type: Other
  Country: CA (occurrence: CA)
  Receive Date: 20230609
  Receipt Date: 20230609
  Transmission Date: 20230722
  Serious: Yes (Death, Other)
  Sender: FDA-Public Use
  Company Number: CA-CELLTRION INC.-2023CA011667

PATIENT

DRUGS (4)
  1. RITUXIMAB [Suspect]
     Active Substance: RITUXIMAB
     Indication: Rheumatoid arthritis
     Dosage: 1000.0 MILLIGRAM
     Route: 041
  2. METHOTREXATE [Concomitant]
     Active Substance: METHOTREXATE
     Route: 037
  3. PREDNISONE [Concomitant]
     Active Substance: PREDNISONE
  4. RISEDRONATE SODIUM [Concomitant]
     Active Substance: RISEDRONATE SODIUM

REACTIONS (1)
  - Pneumonia [Fatal]
